FAERS Safety Report 20021769 (Version 1)
Quarter: 2021Q4

REPORT INFORMATION
  Report Type: Report from Study
  Country: US (occurrence: US)
  Receive Date: 20211101
  Receipt Date: 20211101
  Transmission Date: 20220304
  Serious: Yes (Other)
  Sender: FDA-Public Use
  Company Number: US-GILEAD-2021-0554765

PATIENT
  Sex: Female

DRUGS (3)
  1. IDELALISIB [Suspect]
     Active Substance: IDELALISIB
     Indication: Hodgkin^s disease
     Dosage: 150 MG, BID
     Route: 048
     Dates: start: 20210304
  2. IDELALISIB [Suspect]
     Active Substance: IDELALISIB
     Indication: Bone cancer
  3. IDELALISIB [Suspect]
     Active Substance: IDELALISIB
     Indication: Breast cancer female

REACTIONS (1)
  - Disease progression [Unknown]
